FAERS Safety Report 5708017-1 (Version None)
Quarter: 2008Q2

REPORT INFORMATION
  Report Type: 
  Country: None (occurrence: None)
  Receive Date: 20080417
  Receipt Date: 20080411
  Transmission Date: 20081010
  Serious: Yes (Hospitalization)
  Sender: FDA-Public Use
  Company Number: US-ROCHE-558131

PATIENT
  Age: 46 Year
  Sex: Male

DRUGS (6)
  1. VESANOID [Suspect]
     Route: 065
     Dates: start: 20080328
  2. IDARUBICIN HCL [Suspect]
     Route: 065
  3. ACYCLOVIR [Concomitant]
     Dosage: FREQUENCY: EVERY 12 HOURS
     Route: 048
  4. FOLIC ACID [Concomitant]
     Route: 048
  5. CLARITIN [Concomitant]
     Route: 048
  6. PROTONIX [Concomitant]
     Route: 048

REACTIONS (2)
  - CARDIAC ENZYMES INCREASED [None]
  - CHEST PAIN [None]
